FAERS Safety Report 8212433-6 (Version None)
Quarter: 2012Q1

REPORT INFORMATION
  Report Type: 
  Country: None (occurrence: None)
  Receive Date: 20120315
  Receipt Date: 20120309
  Transmission Date: 20120608
  Serious: Yes (Hospitalization, Other)
  Sender: FDA-Public Use
  Company Number: US-BAYER-200938820NA

PATIENT
  Age: 37 Year
  Sex: Female
  Weight: 86.168 kg

DRUGS (6)
  1. NSAID'S [Concomitant]
  2. IBUPROFEN [Concomitant]
  3. PREDNISONE TAB [Concomitant]
  4. YAZ [Suspect]
     Route: 048
  5. PLAQUENIL [Concomitant]
     Indication: SYSTEMIC LUPUS ERYTHEMATOSUS
     Dosage: UNK
     Dates: start: 20040101, end: 20100101
  6. YASMIN [Suspect]
     Indication: MENSTRUATION IRREGULAR
     Route: 048
     Dates: start: 20060101, end: 20070101

REACTIONS (4)
  - THROMBOSIS [None]
  - CHOLECYSTECTOMY [None]
  - PULMONARY EMBOLISM [None]
  - DEEP VEIN THROMBOSIS [None]
